FAERS Safety Report 25350270 (Version 1)
Quarter: 2025Q2

REPORT INFORMATION
  Report Type: Report from Study
  Country: CN (occurrence: CN)
  Receive Date: 20250523
  Receipt Date: 20250523
  Transmission Date: 20250716
  Serious: Yes (Death)
  Sender: ROCHE
  Company Number: CN-ROCHE-10000289454

PATIENT
  Age: 84 Year
  Sex: Male
  Weight: 62 kg

DRUGS (1)
  1. ACTEMRA [Suspect]
     Active Substance: TOCILIZUMAB
     Indication: Rheumatoid arthritis
     Dosage: DOSAGE FORM/STRENGTH: INJECTION/80MG/4ML/ BOTTLE?480MG/TIME, ONCE PER 30 DAYS
     Route: 042
     Dates: start: 20250121

REACTIONS (1)
  - Death [Fatal]

NARRATIVE: CASE EVENT DATE: 20250516
